FAERS Safety Report 13900511 (Version 1)
Quarter: 2017Q3

REPORT INFORMATION
  Report Type: Spontaneous
  Country: FR (occurrence: FR)
  Receive Date: 20170824
  Receipt Date: 20170824
  Transmission Date: 20171127
  Serious: Yes (Hospitalization)
  Sender: FDA-Public Use
  Company Number: FR-TEVA-798352ROM

PATIENT
  Age: 50 Year
  Sex: Female

DRUGS (1)
  1. COPAXONE [Suspect]
     Active Substance: GLATIRAMER ACETATE
     Route: 058
     Dates: start: 20170510

REACTIONS (6)
  - Multiple sclerosis relapse [Unknown]
  - Palpitations [Unknown]
  - Adverse event [Unknown]
  - Depression [Unknown]
  - Fatigue [Unknown]
  - Feeling hot [Unknown]

NARRATIVE: CASE EVENT DATE: 20170731
